FAERS Safety Report 7203123-7 (Version None)
Quarter: 2010Q4

REPORT INFORMATION
  Report Type: 
  Country: None (occurrence: None)
  Receive Date: 20101229
  Receipt Date: 20101221
  Transmission Date: 20110411
  Serious: Yes (Life-Threatening)
  Sender: FDA-Public Use
  Company Number: UG-ABBOTT-10P-165-0650252-00

PATIENT
  Age: 6 Year
  Sex: Female

DRUGS (4)
  1. ALUVIA TABLETS [Suspect]
     Indication: HIV INFECTION
     Dates: start: 20100308
  2. ALUVIA TABLETS [Suspect]
     Indication: MALARIA PROPHYLAXIS
  3. AZT [Concomitant]
     Indication: HIV INFECTION
     Dates: start: 20090122
  4. LAMIVUDINE (EPIVIR HBV) [Concomitant]
     Indication: HIV INFECTION
     Dates: start: 20090122

REACTIONS (1)
  - THROMBOCYTOPENIA [None]
